FAERS Safety Report 9239503 (Version 1)
Quarter: 2013Q2

REPORT INFORMATION
  Report Type: Spontaneous
  Country: US (occurrence: US)
  Receive Date: 20130418
  Receipt Date: 20130418
  Transmission Date: 20140414
  Serious: No
  Sender: FDA-Public Use
  Company Number: US-SANOFI-AVENTIS-2012SA044727

PATIENT
  Age: 42 Year
  Sex: Male

DRUGS (1)
  1. ENOXAPARIN SODIUM - WINTHROP [Suspect]
     Indication: DEEP VEIN THROMBOSIS
     Route: 065
     Dates: start: 20120611

REACTIONS (5)
  - Headache [Not Recovered/Not Resolved]
  - Haematochezia [Unknown]
  - Pain [Unknown]
  - Nausea [Unknown]
  - Lymphadenopathy [Not Recovered/Not Resolved]
